FAERS Safety Report 5939744-9 (Version None)
Quarter: 2008Q4

REPORT INFORMATION
  Report Type: 
  Country: None (occurrence: None)
  Receive Date: 20081030
  Receipt Date: 20081030
  Transmission Date: 20090506
  Serious: Yes (Death)
  Sender: FDA-Public Use
  Company Number: None

PATIENT
  Sex: Male

DRUGS (1)
  1. CHERATUSSIN DAC SOL [Suspect]
     Indication: NASOPHARYNGITIS
     Dosage: 1-2 TEASPOON 4X A DAY
     Dates: start: 20080429

REACTIONS (1)
  - DEATH [None]
